FAERS Safety Report 9716929 (Version 2)
Quarter: 2013Q4

REPORT INFORMATION
  Report Type: Spontaneous
  Country: US (occurrence: US)
  Receive Date: 20131127
  Receipt Date: 20131127
  Transmission Date: 20140711
  Serious: No
  Sender: FDA-Public Use
  Company Number: US-GILEAD-2009-0019888

PATIENT
  Age: 41 Year
  Sex: Female
  Weight: 92.08 kg

DRUGS (11)
  1. LETAIRIS [Suspect]
     Indication: PULMONARY ARTERIAL HYPERTENSION
     Route: 048
     Dates: start: 20081208, end: 20090109
  2. LETAIRIS [Suspect]
     Route: 048
     Dates: start: 20081002, end: 20081207
  3. REVATIO [Concomitant]
     Route: 048
  4. ZOCOR [Concomitant]
     Route: 048
  5. LASIX [Concomitant]
     Route: 048
  6. DILTIAZEM [Concomitant]
     Route: 048
  7. AMBIEN [Concomitant]
     Route: 048
  8. XANAX [Concomitant]
     Route: 048
  9. INVEGA [Concomitant]
     Route: 048
  10. PLAVIX [Concomitant]
     Route: 048
  11. ASA [Concomitant]
     Route: 048

REACTIONS (1)
  - Liver function test abnormal [Recovering/Resolving]
